FAERS Safety Report 10213932 (Version 1)
Quarter: 2014Q2

REPORT INFORMATION
  Report Type: Spontaneous
  Country: JP (occurrence: JP)
  Receive Date: 20140603
  Receipt Date: 20140603
  Transmission Date: 20141212
  Serious: Yes (Hospitalization)
  Sender: FDA-Public Use
  Company Number: JP-MYLANLABS-2014S1012333

PATIENT
  Age: 8 Year
  Sex: Male

DRUGS (4)
  1. PREDNISOLONE [Suspect]
     Indication: GRAFT VERSUS HOST DISEASE
     Route: 048
  2. PROGRAF [Concomitant]
     Indication: GRAFT VERSUS HOST DISEASE
     Route: 048
  3. METHOTREXATE [Concomitant]
     Indication: GRAFT VERSUS HOST DISEASE
  4. METHYLPREDNISOLONE [Concomitant]
     Indication: GRAFT VERSUS HOST DISEASE

REACTIONS (3)
  - Diarrhoea [Recovering/Resolving]
  - Gastroenteritis norovirus [Recovering/Resolving]
  - Cholecystitis acute [Recovering/Resolving]
